FAERS Safety Report 5848201-X (Version None)
Quarter: 2008Q3

REPORT INFORMATION
  Report Type: 
  Country: None (occurrence: None)
  Receive Date: 20080818
  Receipt Date: 20080814
  Transmission Date: 20090109
  Serious: Yes (Other)
  Sender: FDA-Public Use
  Company Number: B0532070A

PATIENT
  Age: 63 Year
  Sex: Male

DRUGS (1)
  1. ARTIST [Suspect]
     Indication: DRUG USE FOR UNKNOWN INDICATION
     Route: 065
     Dates: start: 20060201, end: 20060301

REACTIONS (1)
  - LIVER DISORDER [None]
